FAERS Safety Report 19243524 (Version 2)
Quarter: 2021Q2

REPORT INFORMATION
  Report Type: Spontaneous
  Country: US (occurrence: US)
  Receive Date: 20210511
  Receipt Date: 20210615
  Transmission Date: 20210717
  Serious: No
  Sender: FDA-Public Use
  Company Number: US-BRISTOL-MYERS SQUIBB COMPANY-BMS-2021-041362

PATIENT
  Age: 73 Year
  Sex: Female
  Weight: 70.3 kg

DRUGS (2)
  1. KENALOG?40 [Suspect]
     Active Substance: TRIAMCINOLONE ACETONIDE
     Indication: SHOULDER OPERATION
     Dosage: 0.5 MILLILITER, QD
     Route: 058
     Dates: start: 20210211
  2. PULMICORT TURBUHALER [Concomitant]
     Active Substance: BUDESONIDE
     Indication: PRODUCT USED FOR UNKNOWN INDICATION
     Dosage: UNK
     Route: 065

REACTIONS (9)
  - Insomnia [Unknown]
  - Contusion [Unknown]
  - Swelling face [Unknown]
  - Feeling abnormal [Unknown]
  - Intentional product use issue [Unknown]
  - Blood pressure abnormal [Unknown]
  - Eye swelling [Unknown]
  - Erythema [Unknown]
  - Feeling hot [Unknown]
